FAERS Safety Report 21511754 (Version 1)
Quarter: 2022Q4

REPORT INFORMATION
  Report Type: Spontaneous
  Country: US (occurrence: US)
  Receive Date: 20221027
  Receipt Date: 20221027
  Transmission Date: 20230113
  Serious: Yes (Life-Threatening, Hospitalization, Other)
  Sender: FDA-Public Use
  Company Number: US-MACLEODS PHARMACEUTICALS US LTD-MAC2022037935

PATIENT

DRUGS (1)
  1. VENLAFAXINE [Suspect]
     Active Substance: VENLAFAXINE HYDROCHLORIDE
     Indication: Product used for unknown indication
     Dosage: 60 DOSAGE FORM, SINGLE (TABLET)
     Route: 065

REACTIONS (4)
  - Acute respiratory distress syndrome [Recovering/Resolving]
  - Intentional overdose [Recovering/Resolving]
  - Serotonin syndrome [Recovering/Resolving]
  - Electrocardiogram QT prolonged [Recovering/Resolving]
